FAERS Safety Report 9672432 (Version 1)
Quarter: 2013Q4

REPORT INFORMATION
  Report Type: Report from Study
  Country: US (occurrence: US)
  Receive Date: 20131106
  Receipt Date: 20131106
  Transmission Date: 20140711
  Serious: Yes (Hospitalization, Other)
  Sender: FDA-Public Use
  Company Number: US-ABBVIE-13P-163-1165027-00

PATIENT
  Sex: Female
  Weight: 47.67 kg

DRUGS (10)
  1. HUMIRA [Suspect]
     Indication: RHEUMATOID ARTHRITIS
     Dates: end: 201304
  2. PREDNISONE [Concomitant]
     Indication: RHEUMATOID ARTHRITIS
  3. ETODOLAC [Concomitant]
     Indication: INFLAMMATION
  4. ASPIRIN [Concomitant]
     Indication: ANTICOAGULANT THERAPY
     Dosage: 81 MG DAILY
  5. NIFEDICAL [Concomitant]
     Indication: HYPERTENSION
  6. ATENOLOL [Concomitant]
     Indication: HYPERTENSION
  7. ALBUTEROL [Concomitant]
     Indication: ASTHMA
  8. OMEPRAZOL [Concomitant]
     Indication: GASTROOESOPHAGEAL REFLUX DISEASE
  9. LEVOTHYROXINE [Concomitant]
     Indication: THYROID DISORDER
  10. ALPRAZOLAM [Concomitant]
     Indication: INSOMNIA

REACTIONS (18)
  - Bone fragmentation [Unknown]
  - Foot deformity [Unknown]
  - Cyst [Unknown]
  - Ankle fracture [Unknown]
  - Oedema peripheral [Unknown]
  - Foot operation [Unknown]
  - Localised infection [Unknown]
  - Localised infection [Unknown]
  - Osteopenia [Unknown]
  - Anxiety [Not Recovered/Not Resolved]
  - Joint injury [Not Recovered/Not Resolved]
  - Foot deformity [Unknown]
  - Hand deformity [Unknown]
  - Elbow deformity [Unknown]
  - Osteoporosis [Not Recovered/Not Resolved]
  - Arthralgia [Not Recovered/Not Resolved]
  - Joint swelling [Not Recovered/Not Resolved]
  - Osteoporosis [Not Recovered/Not Resolved]
